FAERS Safety Report 8336777-2 (Version None)
Quarter: 2012Q2

REPORT INFORMATION
  Report Type: 
  Country: None (occurrence: None)
  Receive Date: 20120504
  Receipt Date: 20100621
  Transmission Date: 20120825
  Serious: No
  Sender: FDA-Public Use
  Company Number: US-TEVA-2010003362

PATIENT
  Sex: Male
  Weight: 72.64 kg

DRUGS (3)
  1. NUVIGIL [Suspect]
     Indication: NARCOLEPSY
     Dosage: 250 MILLIGRAM;
     Route: 048
     Dates: start: 20100608
  2. MULTI-VITAMIN [Concomitant]
  3. PROTEIN DRINK [Concomitant]

REACTIONS (3)
  - ABNORMAL BEHAVIOUR [None]
  - NAUSEA [None]
  - DEPRESSED MOOD [None]
